FAERS Safety Report 20232620 (Version 1)
Quarter: 2021Q4

REPORT INFORMATION
  Report Type: Spontaneous
  Country: CN (occurrence: CN)
  Receive Date: 20211227
  Receipt Date: 20211227
  Transmission Date: 20220303
  Serious: Yes (Hospitalization)
  Sender: FDA-Public Use
  Company Number: CN-BAYER-2021A274415

PATIENT
  Age: 49 Year
  Sex: Female

DRUGS (2)
  1. GLUCOBAY [Suspect]
     Active Substance: ACARBOSE
     Indication: Type 2 diabetes mellitus
     Dosage: 50 MG, BID
     Route: 048
     Dates: start: 202108, end: 20211207
  2. REPAGLINIDE [Concomitant]
     Active Substance: REPAGLINIDE
     Dosage: 2 MG, BID
     Route: 048
     Dates: start: 202108

REACTIONS (2)
  - Liver injury [Recovering/Resolving]
  - Diabetic neuropathy [None]

NARRATIVE: CASE EVENT DATE: 20211101
